FAERS Safety Report 4927734-4 (Version None)
Quarter: 2006Q1

REPORT INFORMATION
  Report Type: 
  Country: None (occurrence: None)
  Receive Date: 20060228
  Receipt Date: 20060224
  Transmission Date: 20060701
  Serious: Yes (Hospitalization, Other)
  Sender: FDA-Public Use
  Company Number: US-JNJFOC-20060201914

PATIENT
  Age: 50 Year
  Sex: Male

DRUGS (3)
  1. ARESTIN [Suspect]
     Route: 004
  2. ARESTIN [Suspect]
     Indication: PERIODONTITIS
     Route: 004
  3. LEVOTHYROXINE SODIUM [Concomitant]

REACTIONS (5)
  - ARTHRALGIA [None]
  - HEADACHE [None]
  - HYPERSENSITIVITY [None]
  - INFLUENZA LIKE ILLNESS [None]
  - SYNCOPE [None]
